FAERS Safety Report 13903043 (Version 1)
Quarter: 2017Q3

REPORT INFORMATION
  Report Type: Spontaneous
  Country: US (occurrence: US)
  Receive Date: 20170824
  Receipt Date: 20170824
  Transmission Date: 20171127
  Serious: Yes (Life-Threatening, Other)
  Sender: FDA-Public Use
  Company Number: US-NAPPMUNDI-GBR-2017-0048122

PATIENT
  Age: 6 Year
  Sex: Male

DRUGS (5)
  1. NON-PMN MORPHINE SULFATE [Suspect]
     Active Substance: MORPHINE SULFATE
     Dosage: 0.05 MG/KG TWO DOSES, DAY 3 CYCLE 2
     Route: 065
  2. GABAPENTIN. [Suspect]
     Active Substance: GABAPENTIN
     Indication: PRODUCT USED FOR UNKNOWN INDICATION
     Route: 065
  3. NON-PMN MORPHINE SULFATE [Suspect]
     Active Substance: MORPHINE SULFATE
     Indication: PAIN
     Dosage: 0.033 MG/KG Q1H, DAY 4 CYCLE 2
     Route: 042
  4. NON-PMN MORPHINE SULFATE [Suspect]
     Active Substance: MORPHINE SULFATE
     Dosage: 0.08 MG/KG, Q1H, DAY 1 CYCLE 2
     Route: 042
  5. NON-PMN MORPHINE SULFATE [Suspect]
     Active Substance: MORPHINE SULFATE
     Dosage: 0.05 MG/KG BOLUS, DAY 1 CYCLE 2
     Route: 065

REACTIONS (4)
  - Sedation complication [Unknown]
  - Hypoxia [Unknown]
  - Bradypnoea [Unknown]
  - Urinary retention [Unknown]
